FAERS Safety Report 5003244-3 (Version None)
Quarter: 2006Q2

REPORT INFORMATION
  Report Type: 
  Country: None (occurrence: None)
  Receive Date: 20060502
  Receipt Date: 20060419
  Transmission Date: 20061013
  Serious: Yes (Hospitalization)
  Sender: FDA-Public Use
  Company Number: THYM-10927

PATIENT
  Age: 45 Year
  Sex: Male

DRUGS (6)
  1. THYMOGLOBULIN [Suspect]
     Indication: RENAL TRANSPLANT
  2. THYMOGLOBULIN [Suspect]
  3. THYMOGLOBULIN [Suspect]
  4. HYDROCORTISONE HEMISUCCINATE [Concomitant]
  5. POLARAMINE [Concomitant]
  6. SOLUMEDRONE [Concomitant]

REACTIONS (9)
  - CHILLS [None]
  - CYTOKINE RELEASE SYNDROME [None]
  - DEVICE MALFUNCTION [None]
  - INCORRECT DRUG ADMINISTRATION RATE [None]
  - OXYGEN SATURATION DECREASED [None]
  - POOR QUALITY DRUG ADMINISTERED [None]
  - PROCEDURAL COMPLICATION [None]
  - PYREXIA [None]
  - THERAPEUTIC PRODUCT CONTAMINATION [None]
